FAERS Safety Report 24238577 (Version 1)
Quarter: 2024Q3

REPORT INFORMATION
  Report Type: Spontaneous
  Country: US (occurrence: US)
  Receive Date: 20240822
  Receipt Date: 20240822
  Transmission Date: 20241017
  Serious: Yes (Death, Hospitalization, Other)
  Sender: AMGEN
  Company Number: US-AMGEN-USASP2024162358

PATIENT

DRUGS (1)
  1. BEVACIZUMAB [Suspect]
     Active Substance: BEVACIZUMAB
     Indication: Brain neoplasm
     Dosage: UNK
     Route: 065

REACTIONS (16)
  - Death [Fatal]
  - Unevaluable event [Unknown]
  - Glioblastoma multiforme [Unknown]
  - Meningioma [Unknown]
  - Astrocytoma malignant [Unknown]
  - Metastatic neoplasm [Unknown]
  - Neoplasm recurrence [Unknown]
  - Hydrocephalus [Unknown]
  - Pseudomeningocele [Unknown]
  - Cerebrospinal fluid leakage [Unknown]
  - Osteomyelitis [Unknown]
  - Extradural abscess [Unknown]
  - Wound complication [Unknown]
  - Wound dehiscence [Unknown]
  - Pneumocephalus [Unknown]
  - Soft tissue infection [Unknown]
